FAERS Safety Report 12698842 (Version 1)
Quarter: 2016Q3

REPORT INFORMATION
  Report Type: Spontaneous
  Country: US (occurrence: US)
  Receive Date: 20160830
  Receipt Date: 20160830
  Transmission Date: 20161109
  Serious: Yes (Other)
  Sender: FDA-Public Use
  Company Number: US-ASTRAZENECA-2016SE90634

PATIENT
  Age: 776 Month
  Sex: Female
  Weight: 63.5 kg

DRUGS (12)
  1. ALPRAZOLAM. [Concomitant]
     Active Substance: ALPRAZOLAM
     Indication: ANXIETY
     Dosage: 5.0MG INTERMITTENT
     Route: 048
     Dates: start: 2014
  2. LOSARTAN. [Concomitant]
     Active Substance: LOSARTAN
     Indication: HYPERTENSION
     Route: 048
     Dates: start: 2014
  3. KETOROLAC TROMETHAMINE. [Concomitant]
     Active Substance: KETOROLAC TROMETHAMINE
     Indication: SUPPLEMENTATION THERAPY
     Route: 047
     Dates: start: 20160225
  4. LABETOLOL [Concomitant]
     Active Substance: LABETALOL HYDROCHLORIDE
     Indication: HYPERTENSION
     Route: 048
     Dates: start: 2014
  5. CIPROFLOXACINE [Concomitant]
     Active Substance: CIPROFLOXACIN
     Indication: EYE INFECTION
     Dosage: 3.0MG UNKNOWN
     Route: 047
  6. ONGLYZA [Suspect]
     Active Substance: SAXAGLIPTIN HYDROCHLORIDE
     Indication: TYPE 2 DIABETES MELLITUS
     Route: 048
     Dates: start: 2014, end: 20160819
  7. ZOLPIDEM [Concomitant]
     Active Substance: ZOLPIDEM\ZOLPIDEM TARTRATE
     Indication: INSOMNIA
     Dosage: 5.0MG INTERMITTENT
     Route: 048
     Dates: start: 2015
  8. DEXILANT [Concomitant]
     Active Substance: DEXLANSOPRAZOLE
     Indication: DYSPEPSIA
     Dosage: 30.0MG INTERMITTENT
     Route: 048
     Dates: start: 201501
  9. PREDNISOLONE. [Concomitant]
     Active Substance: PREDNISOLONE
     Indication: EYE PRURITUS
     Route: 047
  10. GLYBURIDE. [Concomitant]
     Active Substance: GLYBURIDE
     Indication: TYPE 2 DIABETES MELLITUS
     Route: 048
     Dates: start: 2014
  11. LATANOPROST. [Concomitant]
     Active Substance: LATANOPROST
     Indication: SUPPLEMENTATION THERAPY
     Route: 047
     Dates: start: 20160225
  12. BYDUREON [Suspect]
     Active Substance: EXENATIDE
     Indication: TYPE 2 DIABETES MELLITUS
     Route: 058
     Dates: start: 20160819

REACTIONS (12)
  - Gastric ulcer [Recovered/Resolved]
  - Blood glucose increased [Unknown]
  - Nervousness [Unknown]
  - Cataract [Unknown]
  - Dyspepsia [Unknown]
  - Diarrhoea [Recovered/Resolved]
  - Nausea [Unknown]
  - Chills [Unknown]
  - Retinal detachment [Unknown]
  - Abdominal pain upper [Unknown]
  - Headache [Unknown]
  - Speech disorder [Unknown]

NARRATIVE: CASE EVENT DATE: 2015
